FAERS Safety Report 8025210-6 (Version None)
Quarter: 2012Q1

REPORT INFORMATION
  Report Type: 
  Country: None (occurrence: None)
  Receive Date: 20120105
  Receipt Date: 20111229
  Transmission Date: 20120608
  Serious: Yes (Hospitalization, Other)
  Sender: FDA-Public Use
  Company Number: CN-GLAXOSMITHKLINE-B0773028A

PATIENT
  Age: 15 Month

DRUGS (2)
  1. CEFMENOXIME [Concomitant]
     Indication: INFECTION
     Route: 065
     Dates: start: 20111024, end: 20111026
  2. CEFTAZIDIME SODIUM [Suspect]
     Indication: INFECTION
     Route: 065
     Dates: start: 20111026, end: 20111028

REACTIONS (4)
  - EPIDERMOLYSIS BULLOSA [None]
  - RASH ERYTHEMATOUS [None]
  - RASH MACULO-PAPULAR [None]
  - PYREXIA [None]
